FAERS Safety Report 4300984-6 (Version None)
Quarter: 2004Q1

REPORT INFORMATION
  Report Type: 
  Country: None (occurrence: None)
  Receive Date: 20040219
  Receipt Date: 20040209
  Transmission Date: 20041129
  Serious: Yes (Other)
  Sender: FDA-Public Use
  Company Number: 2004198375GB

PATIENT
  Age: 44 Year
  Sex: Female

DRUGS (2)
  1. XALATAN [Suspect]
     Indication: GLAUCOMA
     Dosage: OPHTHALMIC
     Route: 047
     Dates: start: 20040108, end: 20040120
  2. CO-PROXAMOL (DEXTROPROPOXYPHENE HYDROCHLORIDE) [Concomitant]

REACTIONS (1)
  - STEVENS-JOHNSON SYNDROME [None]
